FAERS Safety Report 15180087 (Version 1)
Quarter: 2018Q3

REPORT INFORMATION
  Report Type: Spontaneous
  Country: US (occurrence: US)
  Receive Date: 20180723
  Receipt Date: 20180723
  Transmission Date: 20181010
  Serious: No
  Sender: FDA-Public Use
  Company Number: US-PFIZER INC-2018293998

PATIENT
  Age: 44 Year
  Sex: Female
  Weight: 52.16 kg

DRUGS (1)
  1. GABAPENTIN. [Suspect]
     Active Substance: GABAPENTIN
     Dosage: 4000 MG, DAILY (4000 MG A DAY)

REACTIONS (2)
  - Overdose [Unknown]
  - Drug ineffective [Unknown]
